FAERS Safety Report 6297597-6 (Version None)
Quarter: 2009Q3

REPORT INFORMATION
  Report Type: 
  Country: None (occurrence: None)
  Receive Date: 20090805
  Receipt Date: 20090729
  Transmission Date: 20100115
  Serious: Yes (Hospitalization)
  Sender: FDA-Public Use
  Company Number: FR-EISAI INC.-E7273-00084-SPO-FR

PATIENT
  Sex: Female

DRUGS (10)
  1. TARGRETIN [Suspect]
     Dosage: 5 CAPSULES/DAY
     Route: 048
     Dates: start: 20090408, end: 20090422
  2. PREVISCAN [Suspect]
     Dosage: UNKNOWN
     Route: 048
  3. MYCOSTER [Concomitant]
     Dosage: UNKNOWN
  4. GLIMEPIRIDE [Concomitant]
     Dosage: UNKNOWN
     Route: 048
  5. INIPOMP [Concomitant]
     Dosage: UNKNOWN
     Route: 048
  6. CARDENSIAL [Concomitant]
     Dosage: UNKNOWN
     Route: 048
  7. COTAREG [Concomitant]
     Dosage: UNKNOWN
     Route: 048
  8. AMLODIPINE [Concomitant]
     Dosage: UNKNOWN
     Route: 048
  9. ATARAX [Concomitant]
     Dosage: UNKNOWN
     Route: 048
  10. TAHOR [Concomitant]
     Route: 048

REACTIONS (3)
  - BLOOD TRIGLYCERIDES INCREASED [None]
  - HYPOTHYROIDISM [None]
  - INTERNATIONAL NORMALISED RATIO INCREASED [None]
